FAERS Safety Report 9130998 (Version 1)
Quarter: 2013Q1

REPORT INFORMATION
  Report Type: Report from Study
  Country: DE (occurrence: DE)
  Receive Date: 20130301
  Receipt Date: 20130301
  Transmission Date: 20140127
  Serious: Yes (Hospitalization)
  Sender: FDA-Public Use
  Company Number: DE-SANOFI-AVENTIS-2013SA017960

PATIENT
  Age: 58 Year
  Sex: Female

DRUGS (5)
  1. DOCETAXEL [Suspect]
     Indication: BREAST CANCER
     Route: 042
     Dates: start: 20110119, end: 20110304
  2. PHARMORUBICIN [Suspect]
     Indication: BREAST CANCER
     Route: 042
     Dates: start: 20101109, end: 20101228
  3. 5-FU [Suspect]
     Indication: BREAST CANCER
     Route: 042
     Dates: start: 20101109, end: 20101228
  4. ENDOXAN [Suspect]
     Indication: BREAST CANCER
     Route: 042
     Dates: start: 20101109, end: 20101228
  5. TAMOXIFEN [Suspect]
     Indication: BREAST CANCER
     Route: 048
     Dates: start: 20120326, end: 20121024

REACTIONS (1)
  - Invasive lobular breast carcinoma [Not Recovered/Not Resolved]
